FAERS Safety Report 17840921 (Version 1)
Quarter: 2020Q2

REPORT INFORMATION
  Report Type: Report from Study
  Country: None (occurrence: FR)
  Receive Date: 20200529
  Receipt Date: 20200529
  Transmission Date: 20200714
  Serious: Yes (Other)
  Sender: FDA-Public Use
  Company Number: FR-BAUSCH-BL-2020-015412

PATIENT
  Sex: Female

DRUGS (1)
  1. ACICLOVIR [Suspect]
     Active Substance: ACYCLOVIR
     Indication: VARICELLA ZOSTER VIRUS INFECTION
     Route: 042

REACTIONS (4)
  - Product use issue [Unknown]
  - Maternal exposure during pregnancy [Unknown]
  - Nephropathy toxic [Recovered/Resolved]
  - Acute kidney injury [Recovered/Resolved]
